FAERS Safety Report 5367704-8 (Version None)
Quarter: 2007Q2

REPORT INFORMATION
  Report Type: 
  Country: None (occurrence: None)
  Receive Date: 20070622
  Receipt Date: 20070305
  Transmission Date: 20071010
  Serious: No
  Sender: FDA-Public Use
  Company Number: US-ASTRAZENECA-2007UW04202

PATIENT
  Age: 5 Year
  Sex: Female
  Weight: 19.5 kg

DRUGS (4)
  1. PULMICORT RESPULES [Suspect]
     Indication: ASTHMA
     Route: 055
     Dates: start: 20070302
  2. NASONEX [Concomitant]
  3. SINGULAIR [Concomitant]
  4. XOPENEX [Concomitant]

REACTIONS (6)
  - COUGH [None]
  - CRYING [None]
  - EAR INFECTION [None]
  - PSYCHOMOTOR HYPERACTIVITY [None]
  - RHINORRHOEA [None]
  - THIRST [None]
